FAERS Safety Report 12591486 (Version 2)
Quarter: 2016Q3

REPORT INFORMATION
  Report Type: Spontaneous
  Country: IL (occurrence: IL)
  Receive Date: 20160726
  Receipt Date: 20160826
  Transmission Date: 20161109
  Serious: Yes (Hospitalization)
  Sender: FDA-Public Use
  Company Number: IL-ROCHE-1798755

PATIENT
  Age: 79 Year
  Sex: Female

DRUGS (2)
  1. AZARGA [Concomitant]
     Active Substance: BRINZOLAMIDE\TIMOLOL MALEATE
     Indication: PRODUCT USED FOR UNKNOWN INDICATION
     Dosage: UNK
     Route: 065
  2. LUCENTIS [Suspect]
     Active Substance: RANIBIZUMAB
     Indication: AGE-RELATED MACULAR DEGENERATION
     Dosage: 0.5 MG, UNK
     Route: 065
     Dates: start: 20160713, end: 20160713

REACTIONS (2)
  - Eye infection [Recovering/Resolving]
  - Endophthalmitis [Recovering/Resolving]

NARRATIVE: CASE EVENT DATE: 20160713
